FAERS Safety Report 4756087-X (Version None)
Quarter: 2005Q3

REPORT INFORMATION
  Report Type: 
  Country: None (occurrence: None)
  Receive Date: 20050829
  Receipt Date: 20050829
  Transmission Date: 20060218
  Serious: Yes (Other)
  Sender: FDA-Public Use
  Company Number: None

PATIENT
  Sex: Male

DRUGS (2)
  1. DEPAKOTE [Suspect]
     Indication: BIPOLAR DISORDER
     Dosage: 250 MG  TID   PO
     Route: 048
     Dates: start: 20050201, end: 20050827
  2. CONCERTA [Concomitant]

REACTIONS (1)
  - NEUTROPENIA [None]
